FAERS Safety Report 23627172 (Version 2)
Quarter: 2024Q2

REPORT INFORMATION
  Report Type: Report from Study
  Country: US (occurrence: US)
  Receive Date: 20240313
  Receipt Date: 20240606
  Transmission Date: 20240716
  Serious: No
  Sender: FDA-Public Use
  Company Number: US-SPRINGWORKS THERAPEUTICS-SW-001355

PATIENT
  Sex: Female

DRUGS (2)
  1. NIROGACESTAT [Suspect]
     Active Substance: NIROGACESTAT
     Indication: Desmoid tumour
     Dosage: 150 MILLIGRAM, BID
     Dates: start: 20240221
  2. NIROGACESTAT [Suspect]
     Active Substance: NIROGACESTAT
     Dosage: 100 MILLIGRAM, EVERY 12 HOURS
     Route: 048
     Dates: start: 20240507

REACTIONS (5)
  - Heavy menstrual bleeding [Recovering/Resolving]
  - Menstruation delayed [Unknown]
  - Alopecia [Unknown]
  - Nausea [Unknown]
  - Product dose omission in error [Recovered/Resolved]
